FAERS Safety Report 23530498 (Version 2)
Quarter: 2024Q1

REPORT INFORMATION
  Report Type: Other
  Country: JP (occurrence: None)
  Receive Date: 20240216
  Receipt Date: 20240221
  Transmission Date: 20240410
  Serious: Yes (Other)
  Sender: FDA-Public Use
  Company Number: JP-ROCHE-3507658

PATIENT
  Age: 69 Year
  Sex: Male

DRUGS (3)
  1. AVASTIN [Suspect]
     Active Substance: BEVACIZUMAB
     Indication: Glioblastoma
     Route: 042
  2. TEMOZOLOMIDE [Suspect]
     Active Substance: TEMOZOLOMIDE
     Indication: Glioblastoma
     Dosage: 150 MG/M2 ON DAYS 1-5.
     Route: 065
  3. GLIADEL [Suspect]
     Active Substance: CARMUSTINE
     Indication: Glioblastoma
     Route: 065

REACTIONS (1)
  - Postoperative wound infection [Recovered/Resolved]
